FAERS Safety Report 9707512 (Version 1)
Quarter: 2013Q4

REPORT INFORMATION
  Report Type: Spontaneous
  Country: CN (occurrence: None)
  Receive Date: 20131121
  Receipt Date: 20131121
  Transmission Date: 20140711
  Serious: Yes (Hospitalization)
  Sender: FDA-Public Use
  Company Number: 2013P1021098

PATIENT
  Age: 49 Year
  Sex: Female

DRUGS (6)
  1. LORAZEPAM [Suspect]
     Dosage: 2MG HS
  2. ZOLPIDEM [Suspect]
     Dosage: 50MG, HS
  3. GLICLAZIDE MODIFIED [Concomitant]
  4. METOPROLOL [Concomitant]
  5. CHLORPROMAZINE [Concomitant]
  6. FLUOXETINE [Concomitant]

REACTIONS (8)
  - Incorrect dose administered [None]
  - Grand mal convulsion [None]
  - Tremor [None]
  - Drug withdrawal syndrome [None]
  - Electrocardiogram ST segment elevation [None]
  - Supraventricular tachycardia [None]
  - Metabolic acidosis [None]
  - Stress cardiomyopathy [None]
